APPROVED DRUG PRODUCT: ITRACONAZOLE
Active Ingredient: ITRACONAZOLE
Strength: 100MG
Dosage Form/Route: CAPSULE;ORAL
Application: A205991 | Product #001
Applicant: ACCORD HEALTHCARE INC
Approved: May 26, 2016 | RLD: No | RS: No | Type: DISCN